FAERS Safety Report 4722131-9 (Version None)
Quarter: 2005Q3

REPORT INFORMATION
  Report Type: 
  Country: None (occurrence: None)
  Receive Date: 20050722
  Receipt Date: 20040728
  Transmission Date: 20060218
  Serious: Yes (Other)
  Sender: FDA-Public Use
  Company Number: US-GLAXOSMITHKLINE-A0520495A

PATIENT
  Age: 45 Year
  Sex: Male
  Weight: 159.1 kg

DRUGS (6)
  1. AVANDIA [Suspect]
     Route: 048
     Dates: start: 20000112, end: 20020901
  2. ELAVIL [Concomitant]
     Route: 048
  3. VIOXX [Concomitant]
     Route: 048
  4. DIOVAN HCT [Concomitant]
     Route: 048
  5. INSULIN [Concomitant]
     Route: 058
     Dates: start: 19971229
  6. CARDIZEM [Concomitant]
     Route: 048
     Dates: start: 19950101

REACTIONS (1)
  - CARDIAC FAILURE CONGESTIVE [None]
